FAERS Safety Report 6491505-0 (Version None)
Quarter: 2009Q4

REPORT INFORMATION
  Report Type: 
  Country: None (occurrence: None)
  Receive Date: 20091211
  Receipt Date: 20091130
  Transmission Date: 20100525
  Serious: Yes (Death, Other)
  Sender: FDA-Public Use
  Company Number: US-GENENTECH-295068

PATIENT
  Age: 65 Year
  Sex: Male

DRUGS (5)
  1. RITUXIMAB [Suspect]
     Indication: CENTRAL NERVOUS SYSTEM LYMPHOMA
     Dosage: 750 MG/M2, 1/WEEK
     Route: 065
     Dates: start: 20061106
  2. CELLCEPT [Suspect]
     Indication: AUTOIMMUNE DISORDER
     Dosage: 2500 MG, QD
     Route: 065
     Dates: start: 20010101, end: 20061201
  3. METHOTREXATE [Suspect]
     Indication: CENTRAL NERVOUS SYSTEM LYMPHOMA
     Dosage: UNK
     Route: 065
  4. DEXAMETHASONE TAB [Suspect]
     Indication: BRAIN OEDEMA
  5. GANCICLOVIR [Concomitant]
     Indication: CYTOMEGALOVIRUS INFECTION
     Route: 050

REACTIONS (6)
  - BK VIRUS INFECTION [None]
  - CYTOMEGALOVIRUS INFECTION [None]
  - GLOMERULONEPHRITIS MEMBRANOUS [None]
  - LYMPHOMA [None]
  - MALIGNANT MELANOMA [None]
  - WEIGHT DECREASED [None]
